FAERS Safety Report 6750415-1 (Version None)
Quarter: 2010Q2

REPORT INFORMATION
  Report Type: 
  Country: None (occurrence: None)
  Receive Date: 20100601
  Receipt Date: 20100519
  Transmission Date: 20101027
  Serious: Yes (Death)
  Sender: FDA-Public Use
  Company Number: CA-ELI_LILLY_AND_COMPANY-CA201005006986

PATIENT
  Sex: Male

DRUGS (11)
  1. ZYPREXA [Suspect]
     Dosage: 2.5 MG, 2/D
  2. ZYPREXA [Suspect]
     Dosage: 5 MG, EACH EVENING
  3. ZYPREXA [Suspect]
     Dosage: 2.5 MG, EACH MORNING
  4. SERTRALINE HCL [Concomitant]
     Dosage: 25 MG, DAILY (1/D)
     Dates: start: 20080212
  5. SERTRALINE HCL [Concomitant]
     Dosage: 50 MG, DAILY (1/D)
  6. BIPHENTIN [Concomitant]
     Dosage: 40 MG, EACH MORNING
     Route: 048
  7. CLONIDINE [Concomitant]
     Dosage: 0.1 MG, EACH EVENING
     Route: 048
     Dates: end: 20080108
  8. HALOPERIDOL [Concomitant]
     Dosage: UNK, UNK
     Dates: start: 20080108, end: 20080110
  9. ATOMOXETINE HCL [Concomitant]
     Dates: end: 20080108
  10. BENADRYL [Concomitant]
     Dates: start: 20080110
  11. BENADRYL [Concomitant]
     Dosage: 5 ML, OTHER
     Dates: start: 20080316, end: 20080316

REACTIONS (27)
  - AGGRESSION [None]
  - ASPIRATION [None]
  - ATTENTION DEFICIT/HYPERACTIVITY DISORDER [None]
  - AUTISM SPECTRUM DISORDER [None]
  - BALANCE DISORDER [None]
  - BLOOD PRESSURE DECREASED [None]
  - CARDIO-RESPIRATORY ARREST [None]
  - CHOKING [None]
  - COUGH [None]
  - DYSPHAGIA [None]
  - DYSPNOEA [None]
  - DYSTONIA [None]
  - ENURESIS [None]
  - EXTRAPYRAMIDAL DISORDER [None]
  - EYELID PTOSIS [None]
  - HYPERHIDROSIS [None]
  - MUSCLE SPASMS [None]
  - OBSESSIVE-COMPULSIVE DISORDER [None]
  - OFF LABEL USE [None]
  - POSTURE ABNORMAL [None]
  - SOMNOLENCE [None]
  - SPEECH DISORDER [None]
  - TACHYPNOEA [None]
  - TOURETTE'S DISORDER [None]
  - VOMITING [None]
  - WEIGHT INCREASED [None]
  - WITHDRAWAL SYNDROME [None]
